FAERS Safety Report 21381250 (Version 1)
Quarter: 2022Q3

REPORT INFORMATION
  Report Type: Spontaneous
  Country: US (occurrence: None)
  Receive Date: 20220926
  Receipt Date: 20220926
  Transmission Date: 20221027
  Serious: Yes (Other)
  Sender: FDA-Public Use
  Company Number: None

PATIENT
  Age: 61 Year
  Sex: Female

DRUGS (23)
  1. JARDIANCE [Suspect]
     Active Substance: EMPAGLIFLOZIN
     Indication: Type 2 diabetes mellitus
     Dosage: OTHER QUANTITY : 30 TABLET(S);?
     Route: 048
     Dates: start: 20220909, end: 20220916
  2. AZITHROMYCIN [Concomitant]
     Active Substance: AZITHROMYCIN
  3. PROPRANOLOL [Concomitant]
     Active Substance: PROPRANOLOL HYDROCHLORIDE
  4. METOCLOPRAMIDE [Concomitant]
     Active Substance: METOCLOPRAMIDE
  5. SPIRONOLACTONE [Concomitant]
     Active Substance: SPIRONOLACTONE
  6. HYDROMORPHONE [Concomitant]
     Active Substance: HYDROMORPHONE
  7. ATORVASTATIN [Concomitant]
     Active Substance: ATORVASTATIN
  8. METOPROLOL SUCCINATE [Concomitant]
     Active Substance: METOPROLOL SUCCINATE
  9. DILTIAZEM [Concomitant]
     Active Substance: DILTIAZEM
  10. ADVAIR DISKUS [Concomitant]
     Active Substance: FLUTICASONE PROPIONATE\SALMETEROL XINAFOATE
  11. LOSARTAN [Concomitant]
     Active Substance: LOSARTAN
  12. albuterol CFC free [Concomitant]
  13. POTASSIUM CHLORIDE [Concomitant]
     Active Substance: POTASSIUM CHLORIDE
  14. FUROSEMIDE [Concomitant]
     Active Substance: FUROSEMIDE
  15. PRIMIDONE [Concomitant]
     Active Substance: PRIMIDONE
  16. OMEPRAZOLE [Concomitant]
     Active Substance: OMEPRAZOLE
  17. HYDROCORTISONE [Concomitant]
     Active Substance: HYDROCORTISONE
  18. GLIPIZIDE [Concomitant]
     Active Substance: GLIPIZIDE
  19. ARMOUR THYROID [Concomitant]
     Active Substance: THYROID, PORCINE
  20. LEVOTHYROXINE [Concomitant]
     Active Substance: LEVOTHYROXINE
  21. CAL [Concomitant]
  22. mag [Concomitant]
  23. ZINC [Concomitant]
     Active Substance: ZINC

REACTIONS (7)
  - Urinary incontinence [None]
  - Arthralgia [None]
  - Genital pain [None]
  - Urinary tract pain [None]
  - Erythema [None]
  - Skin haemorrhage [None]
  - Dizziness [None]

NARRATIVE: CASE EVENT DATE: 20220915
